FAERS Safety Report 14360345 (Version 2)
Quarter: 2018Q3

REPORT INFORMATION
  Report Type: Not Available
  Country: US (occurrence: US)
  Receive Date: 20180106
  Receipt Date: 20180701
  Transmission Date: 20181010
  Serious: No
  Sender: FDA-Public Use
  Company Number: US-NEUROCRINE BIOSCIENCES INC.-2017NBI01604

PATIENT
  Age: 49 Year
  Sex: Female
  Weight: 49.49 kg

DRUGS (17)
  1. BENZTROPINE. [Concomitant]
     Active Substance: BENZTROPINE
  2. INGREZZA [Suspect]
     Active Substance: VALBENAZINE
     Indication: TARDIVE DYSKINESIA
     Route: 048
     Dates: start: 2017, end: 201711
  3. FOLIC ACID. [Concomitant]
     Active Substance: FOLIC ACID
  4. POTASSIUM [Concomitant]
     Active Substance: POTASSIUM
  5. INGREZZA [Suspect]
     Active Substance: VALBENAZINE
     Route: 048
     Dates: start: 201711
  6. BENZTROPINE. [Concomitant]
     Active Substance: BENZTROPINE
  7. EFFEXOR XR [Concomitant]
     Active Substance: VENLAFAXINE HYDROCHLORIDE
  8. CLARITIN [Concomitant]
     Active Substance: LORATADINE
  9. PREVACID [Concomitant]
     Active Substance: LANSOPRAZOLE
  10. INGREZZA [Suspect]
     Active Substance: VALBENAZINE
     Route: 048
     Dates: start: 20170901
  11. NARATRIPTAN [Concomitant]
     Active Substance: NARATRIPTAN HYDROCHLORIDE
     Indication: MIGRAINE
  12. KLONOPIN [Concomitant]
     Active Substance: CLONAZEPAM
  13. INGREZZA [Suspect]
     Active Substance: VALBENAZINE
     Route: 048
     Dates: start: 20170816
  14. TOPAMAX [Concomitant]
     Active Substance: TOPIRAMATE
  15. EQVED LAXATIVE [Concomitant]
  16. EFFEXOR [Concomitant]
     Active Substance: VENLAFAXINE HYDROCHLORIDE
  17. MIDODRINE [Concomitant]
     Active Substance: MIDODRINE

REACTIONS (1)
  - Urticaria [Recovered/Resolved]

NARRATIVE: CASE EVENT DATE: 20170822
